FAERS Safety Report 6985009-6 (Version None)
Quarter: 2010Q3

REPORT INFORMATION
  Report Type: 
  Country: None (occurrence: None)
  Receive Date: 20100915
  Receipt Date: 20100902
  Transmission Date: 20110219
  Serious: Yes (Hospitalization)
  Sender: FDA-Public Use
  Company Number: PHHY2010FR55329

PATIENT
  Sex: Female

DRUGS (3)
  1. AFINITOR [Suspect]
     Indication: METASTATIC RENAL CELL CARCINOMA
     Dosage: 10 MG, QD
     Route: 048
  2. AFINITOR [Suspect]
     Dosage: 5 MG, QD
  3. BLOOD TRANSFUSION, AUXILIARY PRODUCTS [Concomitant]
     Dosage: EVERY 2 WEEKS

REACTIONS (2)
  - HAEMOGLOBIN DECREASED [None]
  - IRON DEFICIENCY ANAEMIA [None]
